FAERS Safety Report 5806352-X (Version None)
Quarter: 2008Q3

REPORT INFORMATION
  Report Type: 
  Country: None (occurrence: None)
  Receive Date: 20080710
  Receipt Date: 20050325
  Transmission Date: 20090109
  Serious: Yes (Hospitalization, Other)
  Sender: FDA-Public Use
  Company Number: IT-ROCHE-572219

PATIENT

DRUGS (4)
  1. PEGASYS [Suspect]
     Route: 065
  2. PEGASYS [Suspect]
     Dosage: DOSE REDUCED.
     Route: 065
  3. REBETOL [Suspect]
     Route: 065
  4. REBETOL [Suspect]
     Dosage: DOSE REDUCED.
     Route: 065

REACTIONS (2)
  - HEAD INJURY [None]
  - SYNCOPE [None]
